FAERS Safety Report 8248532-2 (Version None)
Quarter: 2012Q1

REPORT INFORMATION
  Report Type: 
  Country: None (occurrence: None)
  Receive Date: 20120330
  Receipt Date: 20120315
  Transmission Date: 20120608
  Serious: Yes (Death, Hospitalization)
  Sender: FDA-Public Use
  Company Number: TW-BAXTER-2012BH007697

PATIENT
  Sex: Female

DRUGS (1)
  1. DIANEAL LOW CALCIUM WITH DEXTROSE 2.5% AND CALCIUM 2.5MEQ/L [Suspect]
     Route: 033
     Dates: start: 20070901

REACTIONS (2)
  - CATHETER SITE INFECTION [None]
  - SEPTIC SHOCK [None]
